FAERS Safety Report 9214683 (Version 1)
Quarter: 2013Q1

REPORT INFORMATION
  Report Type: Spontaneous
  Country: US (occurrence: None)
  Receive Date: 20120827
  Receipt Date: 20120827
  Transmission Date: 20140127
  Serious: Yes (Hospitalization)
  Sender: FDA-Public Use
  Company Number: 354756

PATIENT
  Age: 54 Year
  Sex: Male
  Weight: 126 kg

DRUGS (7)
  1. VICTOZA (LIRAGLUTIDE) SOLUTION FOR INJECTION, 6MG/ML [Suspect]
     Indication: TYPE 2 DIABETES MELLITUS
     Route: 058
     Dates: start: 20120402, end: 201206
  2. LANTUS (INSULIN GLARGINE) [Concomitant]
  3. METFORMIN (METFORMIN) [Concomitant]
  4. OMEPRAZOLE (OMEPRAZOLE) [Concomitant]
  5. ALLOPURINOL [Concomitant]
  6. COLCHICINE (COLCHICINE) [Concomitant]
  7. VIAGRA (SILDENAFIL CITRATE) [Concomitant]

REACTIONS (1)
  - Pancreatitis [None]
